FAERS Safety Report 24607359 (Version 2)
Quarter: 2024Q4

REPORT INFORMATION
  Report Type: Spontaneous
  Country: VN (occurrence: VN)
  Receive Date: 20241112
  Receipt Date: 20241125
  Transmission Date: 20250115
  Serious: Yes (Hospitalization)
  Sender: TEVA
  Company Number: VN-TEVA-VS-3261930

PATIENT
  Age: 20 Year
  Sex: Female

DRUGS (11)
  1. ETOPOSIDE [Suspect]
     Active Substance: ETOPOSIDE
     Indication: Choriocarcinoma
     Dosage: TP/TE REGIMEN: ADMINISTERED IN 1L OF SODIUM CHLORIDE OVER 1H ON DAY 15
     Route: 042
  2. ETOPOSIDE [Suspect]
     Active Substance: ETOPOSIDE
     Indication: Choriocarcinoma
     Dosage: EMA/CO REGIMEN: ADMINISTERED OVER 30MIN ON DAYS 1 AND 2; TOTAL SIX CYCLES
     Route: 042
  3. METHOTREXATE [Suspect]
     Active Substance: METHOTREXATE
     Indication: Choriocarcinoma
     Dosage: EMA/CO REGIMEN: ADMINISTERED ON DAYS 1 AND 2; TOTAL SIX CYCLES
     Route: 040
  4. METHOTREXATE [Suspect]
     Active Substance: METHOTREXATE
     Indication: Choriocarcinoma
     Dosage: EMA/CO REGIMEN: ADMINISTERED OVER 12H ON DAYS 1 AND 2; TOTAL SIX CYCLES
     Route: 042
  5. CYCLOPHOSPHAMIDE [Suspect]
     Active Substance: CYCLOPHOSPHAMIDE
     Indication: Choriocarcinoma
     Dosage: EMA/CO REGIMEN: ADMINISTERED OVER 30MIN ON DAY 8; TOTAL SIX CYCLES
     Route: 042
  6. DACTINOMYCIN [Suspect]
     Active Substance: DACTINOMYCIN
     Indication: Choriocarcinoma
     Dosage: EMA/CO REGIMEN: ADMINISTERED ON DAYS 1 AND 2; TOTAL SIX CYCLES
     Route: 040
  7. SODIUM CHLORIDE [Concomitant]
     Active Substance: SODIUM CHLORIDE
     Indication: Vehicle solution use
     Dosage: TP/TE REGIMEN: ADMINISTERED WITH PACLITAXEL OVER 3H ON DAYS 1 AND 15
     Route: 042
  8. SODIUM CHLORIDE [Concomitant]
     Active Substance: SODIUM CHLORIDE
     Indication: Vehicle solution use
     Dosage: TP/TE REGIMEN: ADMINISTERED WITH CISPLATIN OVER 3H ON DAY 1 AND WITH ETOPOSIDE OVER 1H ON DAY 15
     Route: 042
  9. PACLITAXEL [Suspect]
     Active Substance: PACLITAXEL
     Indication: Choriocarcinoma
     Dosage: TP/TE REGIMEN: ADMINISTERED IN 250ML OF SODIUM CHLORIDE OVER 3H ON DAYS 1 AND 15
     Route: 042
  10. CISPLATIN [Suspect]
     Active Substance: CISPLATIN
     Indication: Choriocarcinoma
     Dosage: TP/TE REGIMEN: ADMINISTERED IN 1L OF SODIUM CHLORIDE OVER 3H ON DAY 1
     Route: 042
  11. VINCRISTINE [Suspect]
     Active Substance: VINCRISTINE
     Indication: Choriocarcinoma
     Dosage: EMA/CO REGIMEN: ADMINISTERED ON DAY 8; TOTAL SIX CYCLES
     Route: 040

REACTIONS (2)
  - Anaemia [Recovered/Resolved]
  - White blood cell count decreased [Recovered/Resolved]
